FAERS Safety Report 4705130-2 (Version None)
Quarter: 2005Q3

REPORT INFORMATION
  Report Type: 
  Country: None (occurrence: None)
  Receive Date: 20050701
  Receipt Date: 20050620
  Transmission Date: 20060218
  Serious: Yes (Other)
  Sender: FDA-Public Use
  Company Number: US-JNJFOC-20050605469

PATIENT
  Age: 28 Year
  Sex: Female
  Weight: 88.45 kg

DRUGS (8)
  1. DURAGESIC-100 [Suspect]
     Route: 062
  2. DIBENZYLINE [Concomitant]
  3. SYNTHROID [Concomitant]
     Indication: HORMONE REPLACEMENT THERAPY
  4. WELLBUTRIN XL [Concomitant]
     Indication: ANXIETY
  5. WELLBUTRIN XL [Concomitant]
     Indication: DEPRESSION
  6. ZANTAC [Concomitant]
  7. PERCOCET [Concomitant]
  8. PERCOCET [Concomitant]
     Indication: PAIN
     Dosage: AS NEEDED

REACTIONS (7)
  - BLADDER PAIN [None]
  - CHEST PAIN [None]
  - DIARRHOEA [None]
  - HEADACHE [None]
  - HYPERTENSION [None]
  - NAUSEA [None]
  - POLLAKIURIA [None]
